FAERS Safety Report 21956749 (Version 3)
Quarter: 2023Q1

REPORT INFORMATION
  Report Type: Report from Study
  Country: AT (occurrence: AT)
  Receive Date: 20230206
  Receipt Date: 20230306
  Transmission Date: 20230418
  Serious: Yes (Hospitalization, Other)
  Sender: FDA-Public Use
  Company Number: AT-IMMUNOCORE, LTD.-2022-IMC-001305

PATIENT

DRUGS (6)
  1. TEBENTAFUSP [Suspect]
     Active Substance: TEBENTAFUSP
     Indication: Uveal melanoma
     Dosage: 20 MICROGRAM, SINGLE
     Route: 042
     Dates: start: 20221213, end: 20221213
  2. TEBENTAFUSP [Suspect]
     Active Substance: TEBENTAFUSP
     Dosage: 30 MICROGRAM, SINGLE
     Route: 042
     Dates: start: 20221222, end: 20221222
  3. TEBENTAFUSP [Suspect]
     Active Substance: TEBENTAFUSP
     Dosage: 68 MICROGRAM, SINGLE
     Route: 042
     Dates: start: 20221228, end: 20221228
  4. TEBENTAFUSP [Suspect]
     Active Substance: TEBENTAFUSP
     Dosage: UNK UNK, SINGLE,C3D1
     Dates: start: 20230127, end: 20230127
  5. METFORMIN [Concomitant]
     Active Substance: METFORMIN HYDROCHLORIDE
     Indication: Type 2 diabetes mellitus
     Dosage: UNK
  6. LISINOPRIL + AMLODIPINA ZENTIVA [Concomitant]
     Indication: Hypertension
     Dosage: UNK

REACTIONS (6)
  - Pneumonia [Recovered/Resolved]
  - Cytokine release syndrome [Recovered/Resolved]
  - Pyrexia [Recovered/Resolved]
  - Swollen tongue [Recovered/Resolved]
  - Blood creatinine increased [Recovered/Resolved]
  - C-reactive protein increased [Recovered/Resolved]

NARRATIVE: CASE EVENT DATE: 20221213
